FAERS Safety Report 8585019-1 (Version None)
Quarter: 2012Q3

REPORT INFORMATION
  Report Type: 
  Country: None (occurrence: None)
  Receive Date: 20120810
  Receipt Date: 20120804
  Transmission Date: 20120928
  Serious: Yes (Other)
  Sender: FDA-Public Use
  Company Number: US-ABBOTT-12P-163-0893034-00

PATIENT
  Age: 63 Year
  Sex: Female

DRUGS (14)
  1. HUMIRA [Suspect]
     Indication: CROHN'S DISEASE
     Dates: start: 20080701
  2. PREDNISONE TAB [Concomitant]
     Dosage: 25 MG TAPERING
  3. AMBIEN [Concomitant]
     Indication: INSOMNIA
     Dosage: 10 MG QHS
  4. CYMBALTA [Concomitant]
     Indication: BACK PAIN
  5. VENTOLIN [Concomitant]
     Indication: ASTHMA
  6. PREDNISONE TAB [Suspect]
     Indication: PRODUCT USED FOR UNKNOWN INDICATION
  7. DIAZEPAM [Concomitant]
     Indication: ANXIETY
  8. LIDODERM [Concomitant]
     Indication: BACK PAIN
     Route: 062
  9. BISOPROLOL HCZT [Concomitant]
     Indication: DIURETIC THERAPY
  10. TYLENOL [Concomitant]
     Indication: PAIN
  11. FLUTICASONE PROPIONATE [Concomitant]
     Indication: ASTHMA
     Dosage: 250/50 MG 2 PUFF DAILY
  12. MORPHINE SULFATE [Concomitant]
     Indication: ARTHRITIS
  13. OXYCODONE HCL [Concomitant]
     Indication: PAIN
  14. NATEGLINIDE [Concomitant]
     Indication: DIABETES MELLITUS
     Dosage: 60 MG BEFORE MEALS, TID

REACTIONS (11)
  - PYREXIA [None]
  - PARAESTHESIA [None]
  - AORTIC ANEURYSM [None]
  - VISION BLURRED [None]
  - INFLUENZA LIKE ILLNESS [None]
  - ARTHRALGIA [None]
  - FLUID RETENTION [None]
  - ADRENAL INSUFFICIENCY [None]
  - ASTHMA [None]
  - JOINT STIFFNESS [None]
  - DIABETES MELLITUS [None]
